FAERS Safety Report 10069422 (Version 1)
Quarter: 2014Q2

REPORT INFORMATION
  Report Type: Report from Study
  Country: FR (occurrence: FR)
  Receive Date: 20140410
  Receipt Date: 20140410
  Transmission Date: 20141212
  Serious: Yes (Hospitalization)
  Sender: FDA-Public Use
  Company Number: FR-ROCHE-1374843

PATIENT
  Age: 69 Year
  Sex: Female

DRUGS (16)
  1. RITUXIMAB [Suspect]
     Indication: RHEUMATOID ARTHRITIS
     Dosage: DAY 1 INFUSION
     Route: 041
     Dates: start: 20060303
  2. RITUXIMAB [Suspect]
     Dosage: DAY 15 INFUSION
     Route: 041
     Dates: start: 20060317
  3. RITUXIMAB [Suspect]
     Route: 041
     Dates: start: 20080130
  4. RITUXIMAB [Suspect]
     Route: 041
     Dates: start: 20090415
  5. RITUXIMAB [Suspect]
     Route: 041
     Dates: start: 20100326
  6. RITUXIMAB [Suspect]
     Route: 042
     Dates: start: 20101012
  7. RITUXIMAB [Suspect]
     Route: 041
     Dates: start: 20111018
  8. RITUXIMAB [Suspect]
     Route: 042
     Dates: start: 20130211
  9. METHOTREXATE [Suspect]
     Indication: PRODUCT USED FOR UNKNOWN INDICATION
     Route: 048
     Dates: start: 20060303
  10. METHOTREXATE [Suspect]
     Route: 048
     Dates: start: 20090415
  11. METHOTREXATE [Suspect]
     Route: 048
     Dates: start: 20101012
  12. METHOTREXATE [Suspect]
     Route: 048
     Dates: start: 20111018
  13. METHOTREXATE [Suspect]
     Route: 058
     Dates: start: 20120802
  14. METHOTREXATE [Suspect]
     Route: 065
     Dates: start: 20130211
  15. CORTANCYL [Concomitant]
     Dosage: PER DAY
     Route: 065
  16. CORTANCYL [Concomitant]
     Dosage: PER DAY
     Route: 065

REACTIONS (8)
  - Vasculitis [Not Recovered/Not Resolved]
  - Cough [Not Recovered/Not Resolved]
  - Bronchitis [Recovered/Resolved]
  - Drug intolerance [Recovered/Resolved]
  - Sleep disorder [Recovered/Resolved]
  - Irritability [Recovered/Resolved]
  - Nausea [Recovered/Resolved]
  - Purpura [Not Recovered/Not Resolved]
